FAERS Safety Report 4814931-1 (Version None)
Quarter: 2005Q4

REPORT INFORMATION
  Report Type: 
  Country: None (occurrence: None)
  Receive Date: 20051028
  Receipt Date: 20050829
  Transmission Date: 20060501
  Serious: Yes (Hospitalization)
  Sender: FDA-Public Use
  Company Number: NLWYE939130AUG05

PATIENT
  Sex: Male
  Weight: 79 kg

DRUGS (5)
  1. ENBREL [Suspect]
     Indication: ANKYLOSING SPONDYLITIS
     Route: 058
     Dates: start: 20041101, end: 20050802
  2. PHENYLBUTAZONE [Concomitant]
     Indication: ANKYLOSING SPONDYLITIS
  3. ACTONEL [Concomitant]
     Indication: OSTEOPOROSIS
  4. NEXIUM [Concomitant]
     Indication: PROPHYLAXIS
  5. TAMSULOSIN HCL [Concomitant]
     Indication: BENIGN PROSTATIC HYPERPLASIA

REACTIONS (3)
  - NEPHRITIS INTERSTITIAL [None]
  - RENAL ATROPHY [None]
  - RENAL FAILURE [None]
